FAERS Safety Report 8283396-2 (Version None)
Quarter: 2012Q2

REPORT INFORMATION
  Report Type: 
  Country: None (occurrence: None)
  Receive Date: 20120413
  Receipt Date: 20120403
  Transmission Date: 20120825
  Serious: Yes (Death)
  Sender: FDA-Public Use
  Company Number: US-MPIJNJ-2012-02347

PATIENT
  Age: 64 Year
  Sex: Female
  Weight: 66.213 kg

DRUGS (1)
  1. VELCADE [Suspect]
     Indication: NON-HODGKIN'S LYMPHOMA

REACTIONS (1)
  - NON-HODGKIN'S LYMPHOMA [None]
